FAERS Safety Report 10340508 (Version 2)
Quarter: 2014Q3

REPORT INFORMATION
  Report Type: Spontaneous
  Country: US (occurrence: None)
  Receive Date: 20140722
  Receipt Date: 20140804
  Transmission Date: 20150326
  Serious: Yes (Hospitalization)
  Sender: FDA-Public Use
  Company Number: AUR-APL-2014-06954

PATIENT
  Age: 61 Year
  Sex: Male
  Weight: 90.7 kg

DRUGS (4)
  1. ALDOSTERONE [Concomitant]
     Active Substance: ALDOSTERONE
  2. RAMIPRIL. [Suspect]
     Active Substance: RAMIPRIL
     Indication: HYPERTENSION
     Dates: start: 2011, end: 201407
  3. PRAVASTATIN [Concomitant]
     Active Substance: PRAVASTATIN\PRAVASTATIN SODIUM
  4. CLOPIDOGREL [Concomitant]
     Active Substance: CLOPIDOGREL BISULFATE

REACTIONS (5)
  - Blood pressure inadequately controlled [None]
  - Drug ineffective [None]
  - Cerebrovascular accident [None]
  - Fatigue [None]
  - Incorrect dose administered [None]

NARRATIVE: CASE EVENT DATE: 2011
